FAERS Safety Report 15985342 (Version 1)
Quarter: 2019Q1

REPORT INFORMATION
  Report Type: Spontaneous
  Country: FR (occurrence: FR)
  Receive Date: 20190220
  Receipt Date: 20190220
  Transmission Date: 20190418
  Serious: Yes (Disabling, Other)
  Sender: FDA-Public Use
  Company Number: FR-TAKEDA-2018TUS021172

PATIENT
  Age: 72 Year
  Sex: Male
  Weight: 91 kg

DRUGS (1)
  1. ADENURIC [Suspect]
     Active Substance: FEBUXOSTAT
     Indication: HYPERURICAEMIA
     Dosage: 120 MILLIGRAM, QD
     Route: 048
     Dates: start: 2011

REACTIONS (3)
  - Therapeutic response decreased [Recovered/Resolved]
  - Therapeutic response shortened [Recovered/Resolved]
  - Gouty tophus [Not Recovered/Not Resolved]

NARRATIVE: CASE EVENT DATE: 201702
